FAERS Safety Report 5345053-1 (Version None)
Quarter: 2007Q2

REPORT INFORMATION
  Report Type: 
  Country: None (occurrence: None)
  Receive Date: 20070425
  Receipt Date: 20060915
  Transmission Date: 20071010
  Serious: Yes (Disabling)
  Sender: FDA-Public Use
  Company Number: WAES 0609USA03483

PATIENT
  Age: 6 Year
  Sex: Male

DRUGS (2)
  1. SINGULAIR [Suspect]
     Indication: HYPERSENSITIVITY
     Dosage: PO
     Route: 048
     Dates: start: 20040101, end: 20040101
  2. SINGULAIR [Suspect]
     Indication: RHINITIS ALLERGIC
     Dosage: PO
     Route: 048
     Dates: start: 20040101, end: 20040101

REACTIONS (3)
  - AGGRESSION [None]
  - AGITATION [None]
  - RESTLESSNESS [None]
